FAERS Safety Report 10756051 (Version 1)
Quarter: 2015Q1

REPORT INFORMATION
  Report Type: Report from Study
  Country: RU (occurrence: RU)
  Receive Date: 20150202
  Receipt Date: 20150202
  Transmission Date: 20150721
  Serious: Yes (Other)
  Sender: FDA-Public Use
  Company Number: RU-SA-2014SA169653

PATIENT
  Age: 61 Year
  Sex: Female

DRUGS (7)
  1. PLAVIX [Suspect]
     Active Substance: CLOPIDOGREL BISULFATE
     Indication: THROMBOSIS PROPHYLAXIS
     Route: 048
     Dates: start: 201404
  2. OMEPRAZOLE. [Concomitant]
     Active Substance: OMEPRAZOLE
     Indication: GASTRIC ULCER
     Route: 048
     Dates: start: 201411
  3. SOTAHEXAL [Concomitant]
     Active Substance: SOTALOL
     Indication: ARRHYTHMIA
     Dosage: DOSAGE:1/4 OF TABLET 2 TIMES A DAY
     Route: 048
     Dates: start: 201212
  4. GLUCOPHAGE [Concomitant]
     Active Substance: METFORMIN HYDROCHLORIDE
     Indication: TYPE 2 DIABETES MELLITUS
     Route: 048
     Dates: start: 201301
  5. ANTIARRHYTHMICS, CLASS I AND III [Concomitant]
     Active Substance: UNSPECIFIED INGREDIENT
     Dosage: 0.025 MG 1/2 TABLET
     Dates: start: 201212
  6. ASPIRIN CARDIO [Suspect]
     Active Substance: ASPIRIN
     Indication: THROMBOSIS PROPHYLAXIS
     Route: 048
     Dates: start: 201404
  7. DE-NOL /NET/ [Concomitant]
     Indication: GASTRIC ULCER
     Route: 048
     Dates: start: 201411

REACTIONS (3)
  - Headache [Recovered/Resolved]
  - Haematochezia [Recovered/Resolved]
  - Gastritis [Recovered/Resolved]

NARRATIVE: CASE EVENT DATE: 20141122
